FAERS Safety Report 24765649 (Version 1)
Quarter: 2024Q4

REPORT INFORMATION
  Report Type: Report from Study
  Country: US (occurrence: US)
  Receive Date: 20241223
  Receipt Date: 20241223
  Transmission Date: 20250115
  Serious: Yes (Death, Other)
  Sender: BAYER HEALTHCARE LLC
  Company Number: US-BAYER-2024A179997

PATIENT
  Age: 72 Year
  Sex: Male

DRUGS (4)
  1. ASPIRIN [Interacting]
     Active Substance: ASPIRIN
     Indication: Antiplatelet therapy
  2. ASPIRIN [Interacting]
     Active Substance: ASPIRIN
     Indication: Cerebral endovascular aneurysm repair
  3. CLOPIDOGREL [Interacting]
     Active Substance: CLOPIDOGREL BISULFATE
     Indication: Antiplatelet therapy
  4. CLOPIDOGREL [Interacting]
     Active Substance: CLOPIDOGREL BISULFATE
     Indication: Cerebral endovascular aneurysm repair

REACTIONS (2)
  - Shock haemorrhagic [Fatal]
  - Gastrointestinal haemorrhage [Fatal]
